FAERS Safety Report 7005998-3 (Version None)
Quarter: 2010Q3

REPORT INFORMATION
  Report Type: 
  Country: None (occurrence: None)
  Receive Date: 20100921
  Receipt Date: 20100914
  Transmission Date: 20110219
  Serious: Yes (Other)
  Sender: FDA-Public Use
  Company Number: US-RB-013021-10

PATIENT
  Sex: Female

DRUGS (1)
  1. SUBOXONE [Suspect]
     Indication: DRUG DEPENDENCE
     Route: 060
     Dates: start: 20100601, end: 20100101

REACTIONS (12)
  - BACK PAIN [None]
  - DIZZINESS [None]
  - DRUG WITHDRAWAL SYNDROME [None]
  - FORMICATION [None]
  - FREEZING PHENOMENON [None]
  - HYPERHIDROSIS [None]
  - HYPERSENSITIVITY [None]
  - KIDNEY INFECTION [None]
  - MIGRAINE [None]
  - PYREXIA [None]
  - RASH ERYTHEMATOUS [None]
  - RENAL MASS [None]
